FAERS Safety Report 10430999 (Version 1)
Quarter: 2014Q1

REPORT INFORMATION
  Report Type: Spontaneous
  Country: US (occurrence: None)
  Receive Date: 20131226
  Receipt Date: 20131226
  Transmission Date: 20141002
  Serious: No
  Sender: FDA-Public Use
  Company Number: PHEH2013US003042

PATIENT
  Age: 57 Year
  Sex: Female
  Weight: 63.5 kg

DRUGS (1)
  1. GILENYA (FINGOLIMOD) CAPSULE [Suspect]
     Dates: start: 20130122, end: 20130131

REACTIONS (8)
  - Musculoskeletal pain [None]
  - Bone pain [None]
  - Chills [None]
  - Pyrexia [None]
  - Nausea [None]
  - Asthenia [None]
  - Dizziness [None]
  - Depression [None]
